FAERS Safety Report 8156460-6 (Version None)
Quarter: 2012Q1

REPORT INFORMATION
  Report Type: 
  Country: None (occurrence: None)
  Receive Date: 20120222
  Receipt Date: 20120213
  Transmission Date: 20120608
  Serious: No
  Sender: FDA-Public Use
  Company Number: US-B.I. PHARMACEUTICALS,INC./RIDGEFIELD-2012-BP-02751BP

PATIENT
  Age: 72 Year
  Sex: Female

DRUGS (7)
  1. PRADAXA [Suspect]
     Indication: ATRIAL FIBRILLATION
     Dosage: 150 MG
     Route: 048
     Dates: start: 20111101, end: 20111201
  2. PRADAXA [Suspect]
     Dosage: 150 MG
     Route: 048
     Dates: start: 20120101
  3. AMLODIPINE [Concomitant]
     Indication: HYPERTENSION
  4. SYNTHROID [Concomitant]
     Indication: HYPOTHYROIDISM
  5. ASPIRIN [Concomitant]
     Indication: ATRIAL FIBRILLATION
     Dosage: 81 MG
  6. COREG [Concomitant]
     Indication: HYPERTENSION
  7. CRESTOR [Concomitant]
     Indication: BLOOD CHOLESTEROL INCREASED

REACTIONS (3)
  - OEDEMA PERIPHERAL [None]
  - HAEMORRHAGE [None]
  - MOUTH HAEMORRHAGE [None]
